FAERS Safety Report 21463474 (Version 2)
Quarter: 2022Q4

REPORT INFORMATION
  Report Type: Report from Study
  Country: US (occurrence: US)
  Receive Date: 20221017
  Receipt Date: 20221221
  Transmission Date: 20230113
  Serious: Yes (Other)
  Sender: FDA-Public Use
  Company Number: US-ABBVIE-4144175

PATIENT
  Age: 75 Year
  Sex: Male
  Weight: 61.234 kg

DRUGS (5)
  1. HUMIRA [Suspect]
     Active Substance: ADALIMUMAB
     Indication: Psoriasis
     Route: 058
     Dates: start: 20190714, end: 20220919
  2. HUMIRA [Suspect]
     Active Substance: ADALIMUMAB
     Indication: Dermatosis
     Route: 058
     Dates: start: 20220921
  3. DOXYCYCLINE [Concomitant]
     Active Substance: DOXYCYCLINE
     Indication: Product used for unknown indication
     Route: 048
     Dates: start: 20220822, end: 20220830
  4. Pfizer BioNtech covid -19 vaccine [Concomitant]
     Indication: COVID-19 immunisation
     Dosage: 1ST DOSE. ONCE IN ONE
     Route: 030
     Dates: start: 20210205, end: 20210205
  5. Pfizer BioNtech covid -19 vaccine [Concomitant]
     Indication: COVID-19 immunisation
     Dosage: 2ND DOSE. ONCE IN ONE
     Route: 030
     Dates: start: 20210226, end: 20210226

REACTIONS (1)
  - Condition aggravated [Recovered/Resolved]

NARRATIVE: CASE EVENT DATE: 20220827
